FAERS Safety Report 9289812 (Version 2)
Quarter: 2013Q2

REPORT INFORMATION
  Report Type: Report from Study
  Country: AU (occurrence: AU)
  Receive Date: 20130515
  Receipt Date: 20130604
  Transmission Date: 20140414
  Serious: Yes (Other)
  Sender: FDA-Public Use
  Company Number: AU-BIOGENIDEC-2013BI040604

PATIENT
  Age: 45 Year
  Sex: Male
  Weight: 84 kg

DRUGS (8)
  1. BG00012 [Suspect]
     Indication: MULTIPLE SCLEROSIS
     Dates: start: 20101117
  2. PANADOL [Concomitant]
     Indication: HEADACHE
     Route: 048
     Dates: start: 20090316
  3. CELEBREX [Concomitant]
     Indication: BACK PAIN
     Route: 048
     Dates: start: 20110828
  4. VITAMIN C [Concomitant]
     Indication: SUPPLEMENTATION THERAPY
     Route: 048
     Dates: start: 201106
  5. VITAMIN D [Concomitant]
     Indication: SUPPLEMENTATION THERAPY
     Route: 048
     Dates: start: 201106
  6. MULTI-VITAMIN [Concomitant]
     Indication: SUPPLEMENTATION THERAPY
     Route: 048
     Dates: start: 201106
  7. ZYPREXA [Concomitant]
     Indication: DELUSION
     Route: 048
     Dates: start: 20120207
  8. SYMBICORT [Concomitant]
     Indication: WHEEZING
     Dates: start: 20120215

REACTIONS (1)
  - Back pain [Recovered/Resolved]
